FAERS Safety Report 22370158 (Version 3)
Quarter: 2023Q2

REPORT INFORMATION
  Report Type: Report from Study
  Country: HU (occurrence: HU)
  Receive Date: 20230526
  Receipt Date: 20230614
  Transmission Date: 20230722
  Serious: Yes (Death)
  Sender: FDA-Public Use
  Company Number: HU-002147023-NVSC2023HU120287

PATIENT
  Sex: Male

DRUGS (1)
  1. FILGRASTIM [Suspect]
     Active Substance: FILGRASTIM
     Indication: Neutropenia
     Dosage: 1 DOSAGE FORM, QD (1X DAILY)
     Route: 058
     Dates: start: 20230208, end: 20230405

REACTIONS (5)
  - Clostridium colitis [Fatal]
  - Dehydration [Fatal]
  - Prerenal failure [Fatal]
  - Cardiac failure [Fatal]
  - Small cell lung cancer [Fatal]

NARRATIVE: CASE EVENT DATE: 20230502
